FAERS Safety Report 7913294-2 (Version None)
Quarter: 2011Q4

REPORT INFORMATION
  Report Type: 
  Country: None (occurrence: None)
  Receive Date: 20111114
  Receipt Date: 20111103
  Transmission Date: 20120403
  Serious: Yes (Hospitalization)
  Sender: FDA-Public Use
  Company Number: CH-ASTRAZENECA-2011SE66895

PATIENT
  Age: 63 Year
  Sex: Male

DRUGS (11)
  1. SINTROM [Suspect]
     Indication: ATRIAL FIBRILLATION
     Dosage: AS REQUIRED.
     Route: 048
     Dates: start: 20110815, end: 20110921
  2. METOPROLOL SUCCINATE [Concomitant]
     Route: 048
  3. TORSEMIDE [Concomitant]
     Route: 048
  4. CRESTOR [Suspect]
     Route: 048
  5. CIPRO [Suspect]
     Indication: BACTERIAL INFECTION
     Route: 048
     Dates: start: 20110810, end: 20110922
  6. INSULATARD NPH HUMAN [Concomitant]
     Route: 065
  7. NOVOLOG MIX 70/30 [Concomitant]
     Route: 065
  8. ASPIRIN [Suspect]
     Route: 048
  9. SINTROM [Suspect]
     Indication: ATRIAL FLUTTER
     Dosage: AS REQUIRED.
     Route: 048
     Dates: start: 20110815, end: 20110921
  10. CORDARONE [Suspect]
     Route: 048
  11. ENALAPRIL MALEATE [Concomitant]
     Route: 048

REACTIONS (3)
  - GASTROINTESTINAL HAEMORRHAGE [None]
  - INTERNATIONAL NORMALISED RATIO INCREASED [None]
  - ANAEMIA [None]
